FAERS Safety Report 10626578 (Version 1)
Quarter: 2014Q4

REPORT INFORMATION
  Report Type: Report from Study
  Country: US (occurrence: US)
  Receive Date: 20141204
  Receipt Date: 20141204
  Transmission Date: 20150529
  Serious: Yes (Disabling, Other)
  Sender: FDA-Public Use
  Company Number: US-BAYER-2014-176410

PATIENT
  Age: 66 Year
  Sex: Male

DRUGS (3)
  1. TREBANANIB [Suspect]
     Active Substance: TREBANANIB
     Indication: HEPATOCELLULAR CARCINOMA
     Dosage: UNK
  2. SORAFENIB (RAF KINASE INHIBITOR) [Suspect]
     Active Substance: SORAFENIB
     Indication: HEPATOCELLULAR CARCINOMA
     Dosage: 200 MG, BID
  3. SORAFENIB (RAF KINASE INHIBITOR) [Suspect]
     Active Substance: SORAFENIB
     Indication: HEPATOCELLULAR CARCINOMA
     Dosage: UNK (^STANDARD DOSE^ NOS)

REACTIONS (7)
  - Peripheral arterial occlusive disease [Recovered/Resolved]
  - Weight decreased [None]
  - Peripheral ischaemia [None]
  - Leg amputation [None]
  - Skin ulcer [None]
  - Peripheral artery stenosis [Recovered/Resolved]
  - Blister [None]
